FAERS Safety Report 9371385 (Version 2)
Quarter: 2013Q3

REPORT INFORMATION
  Report Type: Spontaneous
  Country: GB (occurrence: GB)
  Receive Date: 20130627
  Receipt Date: 20130703
  Transmission Date: 20140515
  Serious: Yes (Other)
  Sender: FDA-Public Use
  Company Number: GB-JNJFOC-20130615573

PATIENT
  Sex: Female

DRUGS (1)
  1. OVEX [Suspect]
     Indication: ENTEROBIASIS
     Route: 048

REACTIONS (1)
  - Throat tightness [Unknown]
